FAERS Safety Report 4876893-0 (Version None)
Quarter: 2006Q1

REPORT INFORMATION
  Report Type: 
  Country: None (occurrence: None)
  Receive Date: 20060109
  Receipt Date: 20060109
  Transmission Date: 20060701
  Serious: No
  Sender: FDA-Public Use
  Company Number: None

PATIENT
  Age: 34 Year
  Sex: Male
  Weight: 86.1834 kg

DRUGS (2)
  1. STRATTERA [Suspect]
     Indication: ATTENTION DEFICIT/HYPERACTIVITY DISORDER
     Dosage: 10 MG 4 TIMES PER DAY PO
     Route: 048
     Dates: start: 20040212, end: 20040225
  2. STRATTERA [Suspect]
     Indication: DEPRESSION
     Dosage: 10 MG 4 TIMES PER DAY PO
     Route: 048
     Dates: start: 20040212, end: 20040225

REACTIONS (5)
  - DEAFNESS NEUROSENSORY [None]
  - DEAFNESS UNILATERAL [None]
  - FISTULA [None]
  - NAUSEA [None]
  - VERTIGO [None]
